FAERS Safety Report 4522873-4 (Version None)
Quarter: 2004Q4

REPORT INFORMATION
  Report Type: 
  Country: None (occurrence: None)
  Receive Date: 20041207
  Receipt Date: 20041124
  Transmission Date: 20050328
  Serious: Yes (Life-Threatening, Other)
  Sender: FDA-Public Use
  Company Number: BEI-003847

PATIENT
  Age: 71 Year
  Sex: Male

DRUGS (4)
  1. PROHANCE [Suspect]
     Indication: MASS
     Dosage: 12 ML, IV
     Route: 042
     Dates: start: 20031006, end: 20031006
  2. PROHANCE [Suspect]
     Indication: MUSCLE ATROPHY
     Dosage: 12 ML, IV
     Route: 042
     Dates: start: 20031006, end: 20031006
  3. PROHANCE [Suspect]
     Indication: MUSCULAR WEAKNESS
     Dosage: 12 ML, IV
     Route: 042
     Dates: start: 20031006, end: 20031006
  4. PROHANCE [Suspect]
     Indication: NUCLEAR MAGNETIC RESONANCE IMAGING
     Dosage: 12 ML, IV
     Route: 042
     Dates: start: 20031006, end: 20031006

REACTIONS (23)
  - ANAPHYLACTIC SHOCK [None]
  - CARDIO-RESPIRATORY ARREST [None]
  - CHOKING [None]
  - DEPRESSED LEVEL OF CONSCIOUSNESS [None]
  - DISORIENTATION [None]
  - DYSPNOEA [None]
  - ELECTROMECHANICAL DISSOCIATION [None]
  - FEELING ABNORMAL [None]
  - HOARSENESS [None]
  - HYPOXIC ENCEPHALOPATHY [None]
  - LOSS OF CONSCIOUSNESS [None]
  - MEMORY IMPAIRMENT [None]
  - PARAESTHESIA [None]
  - PLEURAL EFFUSION [None]
  - PNEUMONIA ASPIRATION [None]
  - PULSE ABSENT [None]
  - PULSE PRESSURE DECREASED [None]
  - RESPIRATORY RATE DECREASED [None]
  - RETROGRADE AMNESIA [None]
  - SNEEZING [None]
  - TACHYPNOEA [None]
  - VENTRICULAR FIBRILLATION [None]
  - VOMITING [None]
